FAERS Safety Report 6398537-1 (Version None)
Quarter: 2009Q4

REPORT INFORMATION
  Report Type: 
  Country: None (occurrence: None)
  Receive Date: 20091013
  Receipt Date: 20091001
  Transmission Date: 20100525
  Serious: Yes (Hospitalization)
  Sender: FDA-Public Use
  Company Number: MY-PFIZER INC-2006097861

PATIENT
  Age: 57 Year

DRUGS (7)
  1. SUNITINIB MALATE [Suspect]
     Indication: METASTATIC RENAL CELL CARCINOMA
     Dosage: 50 MG, 1X/DAY
     Route: 048
     Dates: start: 20060418
  2. ALLOPURINOL [Concomitant]
     Route: 048
     Dates: start: 20040101
  3. MORPHINE [Concomitant]
     Route: 048
     Dates: start: 20060407
  4. COLCHICINE [Concomitant]
     Route: 048
     Dates: start: 20060524
  5. RANITIDINE [Concomitant]
     Route: 048
     Dates: start: 20060605
  6. BENZYDAMINE-TETRACYCLINE [Concomitant]
     Route: 061
     Dates: start: 20060516
  7. XYLOCAINE [Concomitant]
     Route: 061
     Dates: start: 20060516

REACTIONS (4)
  - ASPARTATE AMINOTRANSFERASE INCREASED [None]
  - BLOOD BILIRUBIN INCREASED [None]
  - RENAL IMPAIRMENT [None]
  - VOMITING [None]
